FAERS Safety Report 15715837 (Version 1)
Quarter: 2018Q4

REPORT INFORMATION
  Report Type: Spontaneous
  Country: JP (occurrence: JP)
  Receive Date: 20181212
  Receipt Date: 20181212
  Transmission Date: 20190205
  Serious: Yes (Death, Other)
  Sender: FDA-Public Use
  Company Number: PHJP2018JP020519

PATIENT
  Age: 82 Year
  Sex: Female

DRUGS (2)
  1. DENOSUMAB [Concomitant]
     Active Substance: DENOSUMAB
     Indication: PRODUCT USED FOR UNKNOWN INDICATION
     Dosage: UNK
     Route: 065
  2. ZOLEDRONATE [Suspect]
     Active Substance: ZOLEDRONIC ACID
     Indication: METASTASES TO BONE
     Dosage: UNK
     Route: 041
     Dates: start: 2008

REACTIONS (7)
  - Cerebral infarction [Fatal]
  - Brain abscess [Fatal]
  - Asthenia [Fatal]
  - Osteonecrosis of jaw [Unknown]
  - Fall [Unknown]
  - Exposed bone in jaw [Unknown]
  - Breath odour [Unknown]

NARRATIVE: CASE EVENT DATE: 2014
